FAERS Safety Report 7441702-2 (Version None)
Quarter: 2011Q2

REPORT INFORMATION
  Report Type: 
  Country: None (occurrence: None)
  Receive Date: 20110414
  Receipt Date: 20110331
  Transmission Date: 20111010
  Serious: Yes (Hospitalization)
  Sender: FDA-Public Use
  Company Number: 2011PROUSA00269

PATIENT
  Age: 67 Year
  Sex: Male

DRUGS (1)
  1. PROVENGE [Suspect]
     Indication: PROSTATE CANCER METASTATIC
     Dosage: 250 ML, SINGLE, INTRAVENOUS
     Route: 042
     Dates: start: 20110324, end: 20110324

REACTIONS (9)
  - HAEMOLYSIS [None]
  - BLOOD BILIRUBIN INCREASED [None]
  - METASTASES TO LIVER [None]
  - ASTHENIA [None]
  - NAUSEA [None]
  - FATIGUE [None]
  - HEPATOTOXICITY [None]
  - VOMITING [None]
  - HEPATIC ENZYME INCREASED [None]
